FAERS Safety Report 8434860-4 (Version None)
Quarter: 2012Q2

REPORT INFORMATION
  Report Type: 
  Country: None (occurrence: None)
  Receive Date: 20120614
  Receipt Date: 20120605
  Transmission Date: 20120825
  Serious: Yes (Hospitalization)
  Sender: FDA-Public Use
  Company Number: US-BAYER-2012-030795

PATIENT
  Age: 20 Year
  Sex: Female
  Weight: 72.562 kg

DRUGS (5)
  1. YAZ [Suspect]
  2. YAZ [Suspect]
     Indication: DYSMENORRHOEA
     Dosage: UNK
     Dates: start: 20080804, end: 20080906
  3. YAZ [Suspect]
     Indication: PREMENSTRUAL SYNDROME
  4. NSAID'S [Concomitant]
  5. VERAMYST [Concomitant]
     Dosage: 27.5 ?G, UNK
     Dates: start: 20080827

REACTIONS (8)
  - DEPRESSION [None]
  - INJURY [None]
  - FEAR OF DEATH [None]
  - EMOTIONAL DISTRESS [None]
  - NERVOUSNESS [None]
  - PAIN [None]
  - SWELLING [None]
  - DEEP VEIN THROMBOSIS [None]
